FAERS Safety Report 5889345-6 (Version None)
Quarter: 2008Q3

REPORT INFORMATION
  Report Type: 
  Country: None (occurrence: None)
  Receive Date: 20080919
  Receipt Date: 20080909
  Transmission Date: 20090109
  Serious: Yes (Other)
  Sender: FDA-Public Use
  Company Number: US-ELI_LILLY_AND_COMPANY-US200809002014

PATIENT
  Sex: Female
  Weight: 92.971 kg

DRUGS (11)
  1. BYETTA [Suspect]
     Indication: TYPE 2 DIABETES MELLITUS
     Dosage: 5 UG, UNKNOWN
     Route: 058
     Dates: start: 20080401, end: 20080601
  2. BYETTA [Suspect]
     Dosage: 10 UG, 2/D
     Route: 058
     Dates: start: 20080601, end: 20080908
  3. BYETTA [Suspect]
     Dosage: 5 UG, 2/D
     Route: 058
     Dates: start: 20080909
  4. DEPO-PROVERA [Concomitant]
     Indication: CONTRACEPTION
     Dosage: UNK, OTHER
  5. ZOLOFT [Concomitant]
     Indication: DEPRESSION
     Dosage: 100 MG, EACH EVENING
  6. CLONAZEPAM [Concomitant]
     Indication: ANXIETY
     Dosage: 2 MG, EACH EVENING
  7. MIRTAZAPINE [Concomitant]
     Indication: SLEEP DISORDER
     Dosage: 15 MG, EACH EVENING
  8. SINGULAIR [Concomitant]
     Indication: ASTHMA
     Dosage: 5 MG, DAILY (1/D)
  9. XYZAL [Concomitant]
     Indication: URTICARIA
     Dosage: 5 MG, DAILY (1/D)
  10. SYMBICORT [Concomitant]
     Indication: ASTHMA
     Dosage: UNK, EACH MORNING
  11. RANITIDINE [Concomitant]
     Indication: GASTROOESOPHAGEAL REFLUX DISEASE
     Dosage: UNK, 2/D

REACTIONS (9)
  - BLOOD GLUCOSE DECREASED [None]
  - DISTURBANCE IN ATTENTION [None]
  - DIZZINESS [None]
  - FATIGUE [None]
  - FEELING ABNORMAL [None]
  - HYPOGLYCAEMIC UNCONSCIOUSNESS [None]
  - VISION BLURRED [None]
  - VISUAL IMPAIRMENT [None]
  - WEIGHT DECREASED [None]
